FAERS Safety Report 7519995-2 (Version None)
Quarter: 2011Q2

REPORT INFORMATION
  Report Type: 
  Country: None (occurrence: None)
  Receive Date: 20110602
  Receipt Date: 20110526
  Transmission Date: 20111010
  Serious: Yes (Hospitalization)
  Sender: FDA-Public Use
  Company Number: US-US-EMD SERONO, INC.-7059109

PATIENT
  Sex: Female

DRUGS (2)
  1. UNSPECIFIED ORAL MEDICATION [Concomitant]
     Indication: TYPE 2 DIABETES MELLITUS
  2. REBIF [Suspect]
     Indication: MULTIPLE SCLEROSIS
     Route: 058
     Dates: start: 20071126, end: 20110501

REACTIONS (2)
  - OSTEOARTHRITIS [None]
  - DRUG ADMINISTRATION ERROR [None]
